FAERS Safety Report 23798518 (Version 1)
Quarter: 2024Q2

REPORT INFORMATION
  Report Type: Spontaneous
  Country: US (occurrence: US)
  Receive Date: 20240430
  Receipt Date: 20240430
  Transmission Date: 20240715
  Serious: No
  Sender: FDA-Public Use
  Company Number: US-VANTIVE-2024VAN016566

PATIENT
  Sex: Male

DRUGS (8)
  1. DIANEAL [Suspect]
     Active Substance: CALCIUM CHLORIDE\DEXTROSE\MAGNESIUM CHLORIDE\SODIUM CHLORIDE\SODIUM LACTATE
     Indication: Peritoneal dialysis
     Dosage: VIA MANUAL, CONTINUOUS AMBULATORY PERITONEAL DIALYSIS (CAPD) (DRUG DISCONTINUED)
     Route: 033
     Dates: start: 202312, end: 202401
  2. DIANEAL [Suspect]
     Active Substance: CALCIUM CHLORIDE\DEXTROSE\MAGNESIUM CHLORIDE\SODIUM CHLORIDE\SODIUM LACTATE
     Dosage: 2 BAGS DAILY VIA CYCLER, AUTOMATED PERITONEAL DIALYSIS (APD) AS NEEDED (DRUG DISCONTINUED)
     Route: 033
     Dates: start: 202401
  3. DIANEAL [Suspect]
     Active Substance: CALCIUM CHLORIDE\DEXTROSE\MAGNESIUM CHLORIDE\SODIUM CHLORIDE\SODIUM LACTATE
     Dosage: UNK
     Route: 033
  4. METOPROLOL TARTRATE [Concomitant]
     Active Substance: METOPROLOL TARTRATE
     Indication: Hypertension
     Dosage: STARTED BEFORE PD WITH 12.5MG TWICE DAILY (AS NEEDED) (DISCONTINUED)
     Route: 048
     Dates: end: 202404
  5. METOPROLOL TARTRATE [Concomitant]
     Active Substance: METOPROLOL TARTRATE
     Indication: Anxiety
  6. AMLODIPINE [Concomitant]
     Active Substance: AMLODIPINE BESYLATE
     Indication: Hypertension
     Dosage: STARTED BEFORE PD WITH 2.5MG (AS NEEDED) (DISCONTINUED)
     Route: 048
     Dates: end: 202404
  7. AMLODIPINE [Concomitant]
     Active Substance: AMLODIPINE BESYLATE
     Indication: Anxiety
  8. CLONAZEPAM [Concomitant]
     Active Substance: CLONAZEPAM
     Indication: Anxiety
     Dosage: 2 PILLS AT NIGHT (AS NEEDED) (ONGOING)
     Route: 048
     Dates: start: 1990

REACTIONS (6)
  - Dizziness [Recovered/Resolved]
  - Fall [Recovered/Resolved]
  - Urine output decreased [Recovered/Resolved]
  - Heart rate increased [Recovered/Resolved]
  - Hypotension [Recovered/Resolved]
  - Hypertension [Unknown]
